FAERS Safety Report 13505493 (Version 1)
Quarter: 2017Q2

REPORT INFORMATION
  Report Type: Spontaneous
  Country: US (occurrence: US)
  Receive Date: 20170502
  Receipt Date: 20170502
  Transmission Date: 20170830
  Serious: No
  Sender: FDA-Public Use
  Company Number: US-ASTRAZENECA-2016SE79120

PATIENT
  Age: 16347 Day
  Sex: Male
  Weight: 141.5 kg

DRUGS (24)
  1. PANTOPRAZOLE [Concomitant]
     Active Substance: PANTOPRAZOLE
  2. INSULIN [Concomitant]
     Active Substance: INSULIN NOS
  3. SYMBICORT [Concomitant]
     Active Substance: BUDESONIDE\FORMOTEROL FUMARATE DIHYDRATE
  4. BYDUREON [Suspect]
     Active Substance: EXENATIDE
     Indication: TYPE 2 DIABETES MELLITUS
     Dosage: 2.0MG UNKNOWN
     Route: 058
     Dates: start: 2015
  5. ESCITALOPRAM [Concomitant]
     Active Substance: ESCITALOPRAM OXALATE
  6. LISINOPRIL. [Concomitant]
     Active Substance: LISINOPRIL
  7. HYDROXYZINE [Concomitant]
     Active Substance: HYDROXYZINE HYDROCHLORIDE
  8. LOVAZA [Concomitant]
     Active Substance: OMEGA-3-ACID ETHYL ESTERS
  9. ARIPIPRAZOLE. [Concomitant]
     Active Substance: ARIPIPRAZOLE
  10. VENTOLIN MDI [Concomitant]
  11. ATORVASTATIN [Concomitant]
     Active Substance: ATORVASTATIN
  12. METOLAZONE. [Concomitant]
     Active Substance: METOLAZONE
     Route: 045
  13. AMANTADINE. [Concomitant]
     Active Substance: AMANTADINE HYDROCHLORIDE
  14. FLUTICASONE. [Concomitant]
     Active Substance: FLUTICASONE
     Route: 045
  15. SILDENAFIL. [Concomitant]
     Active Substance: SILDENAFIL
     Route: 045
  16. MESALAMINE. [Concomitant]
     Active Substance: MESALAMINE
  17. KCL [Concomitant]
     Active Substance: POTASSIUM CHLORIDE
  18. DIVALPROEX [Concomitant]
     Active Substance: DIVALPROEX SODIUM
  19. CLONAZEPAM. [Concomitant]
     Active Substance: CLONAZEPAM
  20. DICYCLOMINE [Concomitant]
     Active Substance: DICYCLOMINE HYDROCHLORIDE
  21. GABAPENTIN. [Concomitant]
     Active Substance: GABAPENTIN
  22. TRIHEXYPHENIDYL [Concomitant]
     Active Substance: TRIHEXYPHENIDYL
  23. FUROSEMIDE. [Concomitant]
     Active Substance: FUROSEMIDE
  24. SPIRONOLACTONE. [Concomitant]
     Active Substance: SPIRONOLACTONE

REACTIONS (2)
  - Injection site extravasation [Recovered/Resolved]
  - Injection site haemorrhage [Recovered/Resolved]

NARRATIVE: CASE EVENT DATE: 20160716
